FAERS Safety Report 20153084 (Version 1)
Quarter: 2021Q4

REPORT INFORMATION
  Report Type: Spontaneous
  Country: US (occurrence: US)
  Receive Date: 20211206
  Receipt Date: 20211206
  Transmission Date: 20220303
  Serious: Yes (Other)
  Sender: FDA-Public Use
  Company Number: US-BRISTOL-MYERS SQUIBB COMPANY-BMS-2021-129734

PATIENT
  Age: 51 Year
  Sex: Female

DRUGS (2)
  1. ORENCIA [Suspect]
     Active Substance: ABATACEPT
     Indication: Illness
     Dosage: 125 MILLIGRAM, QWK
     Route: 058
     Dates: start: 201610
  2. ORENCIA [Suspect]
     Active Substance: ABATACEPT
     Indication: Illness
     Dosage: 125 MILLIGRAM, QWK
     Route: 058
     Dates: start: 201610

REACTIONS (2)
  - Adverse event [Unknown]
  - Intentional product use issue [Unknown]
